FAERS Safety Report 13869622 (Version 1)
Quarter: 2017Q3

REPORT INFORMATION
  Report Type: Spontaneous
  Country: US (occurrence: US)
  Receive Date: 20170815
  Receipt Date: 20170815
  Transmission Date: 20171127
  Serious: Yes (Other)
  Sender: FDA-Public Use
  Company Number: US-PFIZER INC-2017349293

PATIENT
  Age: 61 Year
  Sex: Male

DRUGS (5)
  1. ERYTHROMYCIN. [Interacting]
     Active Substance: ERYTHROMYCIN
     Indication: SKIN CANDIDA
  2. NYSTATIN. [Concomitant]
     Active Substance: NYSTATIN
     Indication: RASH ERYTHEMATOUS
     Dosage: UNK
     Route: 061
  3. FLUCONAZOLE. [Suspect]
     Active Substance: FLUCONAZOLE
     Indication: ERYTHRASMA
     Dosage: UNK
     Route: 048
  4. FLUCONAZOLE. [Interacting]
     Active Substance: FLUCONAZOLE
     Indication: SKIN CANDIDA
  5. ERYTHROMYCIN. [Interacting]
     Active Substance: ERYTHROMYCIN
     Indication: ERYTHRASMA
     Dosage: UNK
     Route: 048

REACTIONS (3)
  - Acute generalised exanthematous pustulosis [Recovering/Resolving]
  - Drug interaction [Unknown]
  - Multiple organ dysfunction syndrome [Unknown]
